FAERS Safety Report 7361515-X (Version None)
Quarter: 2011Q1

REPORT INFORMATION
  Report Type: 
  Country: None (occurrence: None)
  Receive Date: 20110318
  Receipt Date: 20110309
  Transmission Date: 20110831
  Serious: Yes (Hospitalization)
  Sender: FDA-Public Use
  Company Number: PHHY2011JP19786

PATIENT
  Age: 35 Year
  Sex: Male

DRUGS (4)
  1. BUSULFAN [Concomitant]
     Indication: BONE MARROW TRANSPLANT
  2. CYCLOPHOSPHAMIDE [Concomitant]
     Indication: BONE MARROW TRANSPLANT
  3. METHOTREXATE [Concomitant]
     Indication: BONE MARROW TRANSPLANT
  4. CYCLOSPORINE [Suspect]
     Indication: BONE MARROW TRANSPLANT
     Dosage: 40 MG, UNK

REACTIONS (3)
  - ORGANISING PNEUMONIA [None]
  - PNEUMOMEDIASTINUM [None]
  - SUBCUTANEOUS EMPHYSEMA [None]
